FAERS Safety Report 11318309 (Version 2)
Quarter: 2015Q3

REPORT INFORMATION
  Report Type: Spontaneous
  Country: US (occurrence: US)
  Receive Date: 20150728
  Receipt Date: 20150730
  Transmission Date: 20151125
  Serious: No
  Sender: FDA-Public Use
  Company Number: CHPA2015US008935

PATIENT
  Age: 85 Year
  Sex: Female

DRUGS (1)
  1. VOLTAREN [Suspect]
     Active Substance: DICLOFENAC SODIUM
     Indication: CHONDROPATHY
     Dosage: 2 G, QID
     Route: 061
     Dates: start: 20150723

REACTIONS (5)
  - Incorrect dose administered [Unknown]
  - Pain [Recovering/Resolving]
  - Miliaria [Recovering/Resolving]
  - Therapeutic response unexpected [Unknown]
  - Product use issue [Unknown]

NARRATIVE: CASE EVENT DATE: 20150723
